FAERS Safety Report 21568335 (Version 1)
Quarter: 2022Q4

REPORT INFORMATION
  Report Type: Spontaneous
  Country: FR (occurrence: FR)
  Receive Date: 20221108
  Receipt Date: 20221108
  Transmission Date: 20230113
  Serious: Yes (Life-Threatening, Hospitalization)
  Sender: FDA-Public Use
  Company Number: FR-MYLANLABS-2022M1123095

PATIENT
  Age: 2 Month
  Sex: Female

DRUGS (9)
  1. AMLODIPINE [Suspect]
     Active Substance: AMLODIPINE BESYLATE
     Indication: Hypertension
     Dosage: 0.6 MILLIGRAM/KILOGRAM, QD
     Route: 048
  2. AMLODIPINE [Suspect]
     Active Substance: AMLODIPINE BESYLATE
     Indication: Malignant hypertension
  3. ACEBUTOLOL [Suspect]
     Active Substance: ACEBUTOLOL
     Indication: Hypertension
     Dosage: 10 MILLIGRAM/KILOGRAM, QD
     Route: 048
  4. ACEBUTOLOL [Suspect]
     Active Substance: ACEBUTOLOL
     Indication: Malignant hypertension
  5. MINOXIDIL [Suspect]
     Active Substance: MINOXIDIL
     Indication: Hypertension
     Dosage: 0.2 MILLIGRAM/KILOGRAM, QD
     Route: 065
  6. MINOXIDIL [Suspect]
     Active Substance: MINOXIDIL
     Indication: Malignant hypertension
     Dosage: 1.4 MILLIGRAM/KILOGRAM, QD
     Route: 065
  7. NICARDIPINE [Suspect]
     Active Substance: NICARDIPINE
     Indication: Malignant hypertension
     Dosage: 5 MILLIGRAM/KILOGRAM, QMINUTE (5 MG/KG/MIN)
     Route: 042
  8. NICARDIPINE [Suspect]
     Active Substance: NICARDIPINE
     Indication: Hypertension
  9. MILRINONE [Concomitant]
     Active Substance: MILRINONE
     Indication: Cardiogenic shock
     Dosage: 0.5 MILLIGRAM/KILOGRAM, QMINUTE (0.5 MG/KG/ MIN (INFUSION))
     Route: 042

REACTIONS (6)
  - Pericardial effusion [Recovered/Resolved]
  - Pleural effusion [Recovered/Resolved]
  - Cardiac tamponade [Unknown]
  - Respiratory failure [Unknown]
  - Haemodynamic instability [Unknown]
  - Therapy non-responder [Unknown]
